FAERS Safety Report 14380511 (Version 9)
Quarter: 2018Q3

REPORT INFORMATION
  Report Type: Spontaneous
  Country: DE (occurrence: DE)
  Receive Date: 20180112
  Receipt Date: 20180710
  Transmission Date: 20181010
  Serious: Yes (Other)
  Sender: FDA-Public Use
  Company Number: DE-PFIZER INC-2018013186

PATIENT
  Age: 86 Year
  Sex: Female

DRUGS (4)
  1. NORSPAN [Suspect]
     Active Substance: BUPRENORPHINE
     Indication: TUMOUR PAIN
     Dosage: UNK
     Route: 062
  2. MORPHINE SULFATE. [Suspect]
     Active Substance: MORPHINE SULFATE
     Dosage: UNK
  3. NORSPAN [Suspect]
     Active Substance: BUPRENORPHINE
     Indication: NEUROPATHY PERIPHERAL
  4. TRAMAL [Suspect]
     Active Substance: TRAMADOL
     Dosage: UNK

REACTIONS (4)
  - Drug intolerance [Unknown]
  - Loss of consciousness [Unknown]
  - Reaction to excipient [Unknown]
  - Abdominal pain [Unknown]
